FAERS Safety Report 5816083-8 (Version None)
Quarter: 2008Q3

REPORT INFORMATION
  Report Type: 
  Country: None (occurrence: None)
  Receive Date: 20080716
  Receipt Date: 20080716
  Transmission Date: 20090109
  Serious: Yes (Disabling, Other)
  Sender: FDA-Public Use
  Company Number: None

PATIENT
  Age: 26 Year
  Sex: Female
  Weight: 74.8435 kg

DRUGS (2)
  1. LEVAQUIN [Suspect]
     Indication: INFECTION PROPHYLAXIS
     Dosage: 750MG ONCE A DAY PO
     Route: 048
     Dates: start: 20000601, end: 20071130
  2. LEVAQUIN [Suspect]
     Indication: SINUSITIS
     Dosage: 750MG ONCE A DAY PO
     Route: 048
     Dates: start: 20000601, end: 20071130

REACTIONS (3)
  - DIZZINESS [None]
  - HYPOPHAGIA [None]
  - TENDONITIS [None]
